FAERS Safety Report 7577644-1 (Version None)
Quarter: 2011Q2

REPORT INFORMATION
  Report Type: 
  Country: None (occurrence: None)
  Receive Date: 20110628
  Receipt Date: 20110624
  Transmission Date: 20111010
  Serious: Yes (Other)
  Sender: FDA-Public Use
  Company Number: US-PFIZER INC-2011141226

PATIENT
  Sex: Male
  Weight: 103 kg

DRUGS (4)
  1. ZETIA [Concomitant]
     Dosage: 10 MG, UNK
  2. DIGOXIN [Concomitant]
     Dosage: UNK
  3. LIPITOR [Suspect]
     Indication: BLOOD CHOLESTEROL INCREASED
     Dosage: 80 MG, 1X/DAY
     Route: 048
     Dates: start: 20060101, end: 20110401
  4. SOTALOL [Concomitant]
     Dosage: UNK

REACTIONS (5)
  - ASPARTATE AMINOTRANSFERASE INCREASED [None]
  - HEPATOMEGALY [None]
  - DIABETES MELLITUS [None]
  - ALANINE AMINOTRANSFERASE INCREASED [None]
  - HEPATIC PAIN [None]
